FAERS Safety Report 9158469 (Version 2)
Quarter: 2013Q4

REPORT INFORMATION
  Report Type: Spontaneous
  Country: FR (occurrence: FR)
  Receive Date: 20130312
  Receipt Date: 20131220
  Transmission Date: 20140711
  Serious: Yes (Hospitalization)
  Sender: FDA-Public Use
  Company Number: FR-TEVA-389331ISR

PATIENT
  Age: 60 Year
  Sex: Female

DRUGS (2)
  1. ESTREVA 0.1% GEL [Suspect]
     Dosage: 3 DOSAGE FORMS DAILY;
     Route: 061
  2. ANDROCUR [Suspect]
     Dosage: 50 MILLIGRAM DAILY;
     Route: 048

REACTIONS (3)
  - Meningioma [Not Recovered/Not Resolved]
  - Visual impairment [Not Recovered/Not Resolved]
  - Visual acuity reduced [Not Recovered/Not Resolved]
